FAERS Safety Report 16325676 (Version 2)
Quarter: 2019Q2

REPORT INFORMATION
  Report Type: Spontaneous
  Country: US (occurrence: US)
  Receive Date: 20190517
  Receipt Date: 20190627
  Transmission Date: 20190711
  Serious: Yes (Other)
  Sender: FDA-Public Use
  Company Number: US-JNJFOC-20190521021

PATIENT
  Sex: Male
  Weight: 99.88 kg

DRUGS (5)
  1. REMICADE [Suspect]
     Active Substance: INFLIXIMAB
     Route: 042
     Dates: start: 20110526, end: 20190402
  2. TRAMADOL. [Concomitant]
     Active Substance: TRAMADOL
     Route: 065
  3. REMICADE [Suspect]
     Active Substance: INFLIXIMAB
     Indication: PSORIATIC ARTHROPATHY
     Route: 042
     Dates: start: 2009
  4. HYOSCYAMINE. [Concomitant]
     Active Substance: HYOSCYAMINE
  5. ADVIL [Concomitant]
     Active Substance: IBUPROFEN
     Route: 065

REACTIONS (3)
  - Product use issue [Unknown]
  - Bladder cancer [Not Recovered/Not Resolved]
  - Off label use [Unknown]

NARRATIVE: CASE EVENT DATE: 2009
